FAERS Safety Report 18785160 (Version 3)
Quarter: 2024Q2

REPORT INFORMATION
  Report Type: Spontaneous
  Country: US (occurrence: US)
  Receive Date: 20210125
  Receipt Date: 20240429
  Transmission Date: 20240716
  Serious: Yes (Other)
  Sender: FDA-Public Use
  Company Number: US-VIIV HEALTHCARE LIMITED-GB2021GSK007142

PATIENT

DRUGS (3)
  1. ABACAVIR SULFATE\DOLUTEGRAVIR SODIUM\LAMIVUDINE [Interacting]
     Active Substance: ABACAVIR SULFATE\DOLUTEGRAVIR SODIUM\LAMIVUDINE
     Indication: HIV infection
  2. CALCIUM CARBONATE [Interacting]
     Active Substance: CALCIUM CARBONATE
     Indication: Supplementation therapy
     Dosage: UNK
     Route: 048
  3. ENOXAPARIN [Suspect]
     Active Substance: ENOXAPARIN
     Indication: Thrombosis prophylaxis

REACTIONS (7)
  - Drug interaction [Unknown]
  - Vomiting [Unknown]
  - Blood HIV RNA increased [Unknown]
  - Inappropriate schedule of product administration [Unknown]
  - Live birth [Unknown]
  - Exposure during pregnancy [Unknown]
  - Drug ineffective [Unknown]
